FAERS Safety Report 16231534 (Version 1)
Quarter: 2019Q2

REPORT INFORMATION
  Report Type: Spontaneous
  Country: DE (occurrence: DE)
  Receive Date: 20190424
  Receipt Date: 20190424
  Transmission Date: 20190711
  Serious: Yes (Hospitalization)
  Sender: FDA-Public Use
  Company Number: DE-TEVA-2019-DE-1041518

PATIENT
  Age: 69 Year
  Sex: Male

DRUGS (4)
  1. ATORVASTATIN-RATIOPHARM 40 MG FILMTABLETTEN [Suspect]
     Active Substance: ATORVASTATIN CALCIUM
     Dosage: 40 MILLIGRAM DAILY;
     Route: 048
     Dates: start: 20180410, end: 201903
  2. ASS AL 100 TAH TABLETTEN [Concomitant]
     Dosage: 100 MILLIGRAM DAILY;
     Route: 048
  3. RAMIPRIL ABZ 2,5 MG TABLETTEN [Concomitant]
     Route: 048
  4. BRILIQUE 90 MG FILMTABLETTEN [Concomitant]
     Dosage: 90 MILLIGRAM DAILY;
     Route: 048

REACTIONS (3)
  - Fall [Not Recovered/Not Resolved]
  - Muscle rupture [Not Recovered/Not Resolved]
  - Asthenia [Not Recovered/Not Resolved]

NARRATIVE: CASE EVENT DATE: 20190204
